FAERS Safety Report 6442544-7 (Version None)
Quarter: 2009Q4

REPORT INFORMATION
  Report Type: 
  Country: None (occurrence: None)
  Receive Date: 20091117
  Receipt Date: 20091104
  Transmission Date: 20100525
  Serious: Yes (Other)
  Sender: FDA-Public Use
  Company Number: GB-RANBAXY-2009RR-29001

PATIENT
  Sex: Male

DRUGS (3)
  1. TOPIRAMATE [Suspect]
     Route: 064
  2. ETHOSUXIMIDE [Suspect]
     Indication: EPILEPSY
     Dosage: 1 G, QD
     Route: 064
  3. VALPROIC ACID [Suspect]
     Indication: EPILEPSY
     Dosage: 1 G, QD
     Route: 064

REACTIONS (2)
  - DRUG EXPOSURE DURING PREGNANCY [None]
  - PYLORIC STENOSIS [None]
